FAERS Safety Report 7219614-9 (Version None)
Quarter: 2011Q1

REPORT INFORMATION
  Report Type: 
  Country: None (occurrence: None)
  Receive Date: 20110111
  Receipt Date: 20101230
  Transmission Date: 20110831
  Serious: Yes (Hospitalization, Other)
  Sender: FDA-Public Use
  Company Number: IT-ELI_LILLY_AND_COMPANY-IT201012006577

PATIENT
  Age: 47 Year
  Sex: Male

DRUGS (23)
  1. GEMCITABINE HCL [Suspect]
     Indication: NON-SMALL CELL LUNG CANCER
     Dosage: 1200 MG/M2, OTHER
     Route: 042
     Dates: start: 20100722, end: 20100812
  2. LASIX [Concomitant]
     Indication: PREMEDICATION
     Dosage: 20 MG, UNK
     Route: 042
     Dates: start: 20100722, end: 20100722
  3. PLASIL [Concomitant]
     Dosage: 20 MG, UNK
     Route: 048
     Dates: start: 20100812, end: 20100812
  4. PLASIL [Concomitant]
     Dosage: 180 MG, UNK
     Route: 048
     Dates: start: 20100813, end: 20100815
  5. DELTACORTENE [Concomitant]
     Dosage: 300 MG, UNK
     Route: 048
     Dates: start: 20100813, end: 20100815
  6. NOVABAN [Concomitant]
     Indication: PREMEDICATION
     Dosage: 5 MG, UNK
     Route: 042
     Dates: start: 20100722, end: 20100722
  7. NOVABAN [Concomitant]
     Dosage: 5 MG, UNK
     Route: 042
     Dates: start: 20100812, end: 20100812
  8. DELTACORTENE [Concomitant]
     Dosage: 50 MG, UNK
     Route: 048
     Dates: start: 20100812, end: 20100812
  9. SALINE [Concomitant]
     Indication: PREMEDICATION
     Dosage: 3000 ML, UNK
     Route: 042
     Dates: start: 20100722, end: 20100722
  10. POTASSIUM CHLORIDE [Concomitant]
     Indication: PREMEDICATION
     Dosage: 30ML/EQ
     Route: 042
     Dates: start: 20100722, end: 20100722
  11. DELTACORTENE [Concomitant]
     Indication: ANTIEMETIC SUPPORTIVE CARE
     Dosage: 50 MG, UNK
     Route: 048
     Dates: start: 20100722, end: 20100722
  12. SALINE [Concomitant]
     Dosage: 3000 ML, UNK
     Route: 042
     Dates: start: 20100812, end: 20100812
  13. PLASIL [Concomitant]
     Indication: ANTIEMETIC SUPPORTIVE CARE
     Dosage: 20 MG, UNK
     Route: 048
     Dates: start: 20100722, end: 20100722
  14. MAGNESIUM SULFATE [Concomitant]
     Dosage: 1 G, UNK
     Route: 042
     Dates: start: 20100812, end: 20100812
  15. SOLDESAM [Concomitant]
     Dosage: 20 MG, UNK
     Route: 042
     Dates: start: 20100812, end: 20100812
  16. DELTACORTENE [Concomitant]
     Dosage: 300 MG, UNK
     Route: 048
     Dates: start: 20100723, end: 20100725
  17. CISPLATIN [Suspect]
     Indication: NON-SMALL CELL LUNG CANCER
     Dosage: 75 MG/M2, UNKNOWN
     Route: 042
     Dates: start: 20100722, end: 20100812
  18. LASIX [Concomitant]
     Dosage: 20 MG, UNK
     Route: 042
     Dates: start: 20100812, end: 20100812
  19. SOLDESAM [Concomitant]
     Indication: PREMEDICATION
     Dosage: 20 MG, UNK
     Route: 042
     Dates: start: 20100722, end: 20100722
  20. SOLDESAM [Concomitant]
     Dosage: 8 MG, UNK
     Route: 042
     Dates: start: 20100729, end: 20100729
  21. POTASSIUM CHLORIDE [Concomitant]
     Dosage: 30 MEQ, UNK
     Route: 042
     Dates: start: 20100812, end: 20100812
  22. MAGNESIUM SULFATE [Concomitant]
     Indication: PREMEDICATION
     Dosage: 1 G, UNKNOWN
     Route: 042
     Dates: start: 20100722, end: 20100722
  23. PLASIL [Concomitant]
     Dosage: 180 MG, UNK
     Route: 048
     Dates: start: 20100723, end: 20100725

REACTIONS (1)
  - PERIPHERAL EMBOLISM [None]
